FAERS Safety Report 21306256 (Version 1)
Quarter: 2022Q3

REPORT INFORMATION
  Report Type: Spontaneous
  Country: US (occurrence: None)
  Receive Date: 20220907
  Receipt Date: 20220907
  Transmission Date: 20221027
  Serious: No
  Sender: FDA-Public Use
  Company Number: None

PATIENT
  Sex: Female

DRUGS (2)
  1. STELARA [Suspect]
     Active Substance: USTEKINUMAB
     Indication: Crohn^s disease
     Dosage: OTHER FREQUENCY : Q 8WKS;?
     Route: 058
     Dates: start: 20211124
  2. STELARA [Suspect]
     Active Substance: USTEKINUMAB
     Indication: Asthma

REACTIONS (2)
  - Crohn^s disease [None]
  - Abdominal pain [None]
